FAERS Safety Report 4597970-8 (Version None)
Quarter: 2005Q1

REPORT INFORMATION
  Report Type: 
  Country: None (occurrence: None)
  Receive Date: 20050125
  Receipt Date: 20040913
  Transmission Date: 20050727
  Serious: No
  Sender: FDA-Public Use
  Company Number: USA040977961

PATIENT
  Age: 21 Year
  Sex: Female

DRUGS (1)
  1. FORTEO [Suspect]
     Indication: HYPOPARATHYROIDISM
     Dosage: 20 UG/2 DAY

REACTIONS (1)
  - PRESCRIBED OVERDOSE [None]
